FAERS Safety Report 21469206 (Version 2)
Quarter: 2022Q4

REPORT INFORMATION
  Report Type: Report from Study
  Country: US (occurrence: US)
  Receive Date: 20221018
  Receipt Date: 20221028
  Transmission Date: 20230112
  Serious: Yes (Life-Threatening, Hospitalization)
  Sender: FDA-Public Use
  Company Number: US-NOVARTISPH-NVSC2022US154307

PATIENT
  Age: 0 Year
  Sex: Male
  Weight: 8.5 kg

DRUGS (9)
  1. TRAMETINIB [Suspect]
     Active Substance: TRAMETINIB
     Indication: Metastatic malignant melanoma
     Dosage: 0.025 MG/KG (0.17 MG, 3.4ML AT 0.025MG/KG)
     Dates: start: 20220607, end: 20220622
  2. TRAMETINIB [Suspect]
     Active Substance: TRAMETINIB
     Dosage: 0.025 MG/KG (0.17MG (3.4ML AT 0.025MG/KG) )
     Dates: start: 20220630, end: 20220731
  3. TRAMETINIB [Suspect]
     Active Substance: TRAMETINIB
     Dosage: 0.03 MG/KG (0.25MG (5ML AT 0.03MG/KG) )
     Route: 065
     Dates: start: 20220805
  4. TRAMETINIB [Suspect]
     Active Substance: TRAMETINIB
     Dosage: 0.03 MG/KG
     Dates: start: 20220607, end: 20220907
  5. TRAMETINIB [Suspect]
     Active Substance: TRAMETINIB
     Dosage: 0.25 MG/KG (0.25MG (5ML AT 0.03MG/KG) )
     Route: 065
     Dates: start: 20220823
  6. TRAMETINIB [Suspect]
     Active Substance: TRAMETINIB
     Dosage: 0.02 MG/KG, QD (0.17MG (0.02MG/KG) )
     Route: 065
     Dates: start: 20220927
  7. TRAMETINIB [Suspect]
     Active Substance: TRAMETINIB
     Dosage: 0.02 MG/KG
     Route: 065
     Dates: start: 20220928
  8. TRAMETINIB [Suspect]
     Active Substance: TRAMETINIB
     Dosage: 0.009 MG/KG (0.1MG (2ML AT 0.009MG/KG) )
     Route: 065
     Dates: start: 20221027
  9. TPN [Concomitant]
     Active Substance: AMINO ACIDS\DEXTROSE\ELECTROLYTES NOS\SOYBEAN OIL
     Indication: Nutritional supplementation
     Dosage: UNK
     Route: 065
     Dates: start: 20220323, end: 20221012

REACTIONS (8)
  - Bacteraemia [Recovered/Resolved]
  - Pyrexia [Recovered/Resolved]
  - Alanine aminotransferase increased [Recovering/Resolving]
  - Blood alkaline phosphatase increased [Recovering/Resolving]
  - Aspartate aminotransferase increased [Recovering/Resolving]
  - Gamma-glutamyltransferase increased [Recovering/Resolving]
  - Bacteraemia [Recovered/Resolved]
  - Pyrexia [Recovered/Resolved]

NARRATIVE: CASE EVENT DATE: 20220620
